FAERS Safety Report 8227903-4 (Version None)
Quarter: 2012Q1

REPORT INFORMATION
  Report Type: 
  Country: None (occurrence: None)
  Receive Date: 20120322
  Receipt Date: 20120228
  Transmission Date: 20120608
  Serious: Yes (Life-Threatening)
  Sender: FDA-Public Use
  Company Number: US-ROCHE-1044811

PATIENT
  Sex: Female
  Weight: 68.1 kg

DRUGS (3)
  1. PHENOBARBITAL TAB [Concomitant]
     Indication: CONVULSION
     Route: 048
  2. XELODA [Suspect]
     Indication: BREAST CANCER METASTATIC
     Route: 048
     Dates: start: 20120103, end: 20120221
  3. MACRODANTIN [Concomitant]
     Indication: URINARY TRACT INFECTION
     Route: 048

REACTIONS (5)
  - ASTHENIA [None]
  - PULMONARY OEDEMA [None]
  - FACE OEDEMA [None]
  - LOCALISED OEDEMA [None]
  - SOMNOLENCE [None]
